FAERS Safety Report 13892593 (Version 1)
Quarter: 2017Q3

REPORT INFORMATION
  Report Type: Spontaneous
  Country: US (occurrence: US)
  Receive Date: 20170822
  Receipt Date: 20170822
  Transmission Date: 20171127
  Serious: Yes (Other)
  Sender: FDA-Public Use
  Company Number: US-ROCHE-712703

PATIENT
  Age: 57 Year
  Sex: Female
  Weight: 62.1 kg

DRUGS (21)
  1. ACTEMRA [Suspect]
     Active Substance: TOCILIZUMAB
     Route: 042
     Dates: start: 20100407, end: 20100407
  2. ACTEMRA [Suspect]
     Active Substance: TOCILIZUMAB
     Route: 042
     Dates: start: 20100505, end: 20100611
  3. CYANOCOBALAMIN. [Concomitant]
     Active Substance: CYANOCOBALAMIN
     Dosage: STRENGTH: 1000UG/ML
     Route: 065
  4. ALLEGRA [Concomitant]
     Active Substance: FEXOFENADINE HYDROCHLORIDE
     Route: 048
  5. LEFLUNOMIDE. [Concomitant]
     Active Substance: LEFLUNOMIDE
     Route: 048
  6. CLARITIN [Concomitant]
     Active Substance: LORATADINE
     Route: 048
  7. PREDNISONE. [Concomitant]
     Active Substance: PREDNISONE
     Route: 048
  8. LANOXIN [Concomitant]
     Active Substance: DIGOXIN
     Dosage: EVERY DAY EXCEPT SUNDAY
     Route: 048
  9. SODIUM POLYSTYRENE SULFONATE. [Concomitant]
     Active Substance: SODIUM POLYSTYRENE SULFONATE
     Dosage: STRENGTH:15GM/60ML?4 TABLESPOONFULS (60 ML)
     Route: 048
  10. COREG CR [Concomitant]
     Active Substance: CARVEDILOL PHOSPHATE
     Route: 048
  11. CETIRIZINE [Concomitant]
     Active Substance: CETIRIZINE HYDROCHLORIDE
     Route: 048
  12. PROMETHAZINE [Concomitant]
     Active Substance: PROMETHAZINE\PROMETHAZINE HYDROCHLORIDE
     Indication: NAUSEA
     Dosage: TAKE ONE HALF TABLET EVERY 4-6 HRS AS NEEDED
     Route: 048
  13. CELECOXIB. [Concomitant]
     Active Substance: CELECOXIB
     Indication: PAIN
     Route: 048
  14. OLOPATADINE. [Concomitant]
     Active Substance: OLOPATADINE
     Dosage: STRENGTH: 0.1 %/GTT SOLN, ONE DROP PER EYE
     Route: 065
  15. AZATHIOPRINE. [Concomitant]
     Active Substance: AZATHIOPRINE
     Route: 048
  16. ACTEMRA [Suspect]
     Active Substance: TOCILIZUMAB
     Indication: RHEUMATOID ARTHRITIS
     Route: 042
     Dates: start: 20100310, end: 20100310
  17. CYCLOBENZAPRINE. [Concomitant]
     Active Substance: CYCLOBENZAPRINE
     Dosage: 2-3 TABLETS AT BED TIME
     Route: 048
  18. LASIX [Concomitant]
     Active Substance: FUROSEMIDE
     Route: 048
  19. FOSAMAX [Concomitant]
     Active Substance: ALENDRONATE SODIUM
     Route: 048
  20. OMEPRAZOLE. [Concomitant]
     Active Substance: OMEPRAZOLE
     Dosage: ONE TABLET 30-MINS PRIOR TO MEAL
     Route: 048
  21. DELTASONE [Concomitant]
     Active Substance: PREDNISONE
     Dosage: AFTER 5 DAYS OF 40 MG DOSING
     Route: 048

REACTIONS (1)
  - Blood triglycerides increased [Recovered/Resolved]

NARRATIVE: CASE EVENT DATE: 20100505
